FAERS Safety Report 25220896 (Version 1)
Quarter: 2025Q2

REPORT INFORMATION
  Report Type: Spontaneous
  Country: US (occurrence: US)
  Receive Date: 20250421
  Receipt Date: 20250421
  Transmission Date: 20250717
  Serious: Yes (Other)
  Sender: PFIZER
  Company Number: US-PFIZER INC-PV202500046565

PATIENT
  Age: 43 Year
  Sex: Female

DRUGS (2)
  1. PACLITAXEL [Suspect]
     Active Substance: PACLITAXEL
     Indication: Invasive ductal breast carcinoma
  2. TRASTUZUMAB [Suspect]
     Active Substance: TRASTUZUMAB
     Indication: Invasive ductal breast carcinoma

REACTIONS (2)
  - Large intestine perforation [Unknown]
  - Peritonitis [Unknown]
